FAERS Safety Report 20857762 (Version 1)
Quarter: 2022Q2

REPORT INFORMATION
  Report Type: Spontaneous
  Country: SE (occurrence: SE)
  Receive Date: 20220521
  Receipt Date: 20220521
  Transmission Date: 20220721
  Serious: Yes (Other)
  Sender: FDA-Public Use
  Company Number: SE-002147023-NVSC2022SE097064

PATIENT
  Age: 69 Year
  Sex: Male

DRUGS (12)
  1. METHOTREXATE [Suspect]
     Active Substance: METHOTREXATE
     Indication: Rheumatoid arthritis
     Dosage: UNIT DOSE: 20 MG, FREQUENCY TIME : 1 WEEK, DURATION : 59 DAYS
     Route: 065
     Dates: start: 20210301, end: 20210429
  2. METHOTREXATE [Suspect]
     Active Substance: METHOTREXATE
     Dosage: 20 MG, FREQUENCY TIME : 1 WEEK, DURATION : 29 DAYS
     Route: 065
     Dates: start: 20210331, end: 20210429
  3. METHOTREXATE [Suspect]
     Active Substance: METHOTREXATE
     Dosage: 25 MG, DURATION : 8 YEARS
     Route: 065
     Dates: start: 20110120, end: 20181201
  4. OLUMIANT [Suspect]
     Active Substance: BARICITINIB
     Indication: Product used for unknown indication
     Dosage: UNKNOWN, UNIT DOSE: 4 MG, STRENGTH: 4 MG, FREQUENCY TIME 1 DAY, DURATION : 84 DAYS
     Route: 065
     Dates: start: 20210204, end: 20210429
  5. ETANERCEPT [Suspect]
     Active Substance: ETANERCEPT
     Indication: Product used for unknown indication
     Dosage: UNIT DOSE: 50 MG, FREQUENCY TIME : 1 WEEK, DURATION : 63 DAYS
     Route: 065
     Dates: start: 20201203, end: 20210204
  6. RINVOQ [Suspect]
     Active Substance: UPADACITINIB
     Indication: Rheumatoid arthritis
     Dosage: UNIT DOSE: 15 MG, FREQUENCY TIME : 1 DAY, DURATION : 45 DAYS
     Route: 048
     Dates: start: 20201019, end: 20201203
  7. XELJANZ [Suspect]
     Active Substance: TOFACITINIB CITRATE
     Indication: Product used for unknown indication
     Dosage: UNIT DOSE: 11 MG, FREQUENCY TIME : 1 DAY
     Route: 065
     Dates: start: 20210712
  8. LEVOTHYROXINE SODIUM [Concomitant]
     Active Substance: LEVOTHYROXINE SODIUM
     Indication: Product used for unknown indication
     Dosage: 75 MCG, FREQUENCY TIME : 1 DAY, THERAPY START DATE : ASKU
  9. AMLODIPINE [Concomitant]
     Active Substance: AMLODIPINE BESYLATE
     Indication: Product used for unknown indication
     Dosage: UNIT DOSE: 10 MG
  10. ATORVASTATIN [Concomitant]
     Active Substance: ATORVASTATIN
     Indication: Product used for unknown indication
     Dosage: 20 MG, FREQUENCY TIME : 1 DAY, THERAPY START DATE : ASKU
  11. LOSARTAN [Concomitant]
     Active Substance: LOSARTAN
     Indication: Product used for unknown indication
     Dosage: 50 MG, FREQUENCY TIME : 1 DAY, THERAPY START DATE : ASKU
  12. METFORMIN [Concomitant]
     Active Substance: METFORMIN HYDROCHLORIDE
     Indication: Product used for unknown indication
     Dosage: 500 MG, THERAPY START DATE : ASKU

REACTIONS (7)
  - Blood creatine increased [Unknown]
  - Renal impairment [Unknown]
  - Muscle spasms [Unknown]
  - Herpes zoster [Unknown]
  - Blood pressure increased [Unknown]
  - Gastrointestinal infection [Unknown]
  - Oedema [Unknown]

NARRATIVE: CASE EVENT DATE: 20220401
